FAERS Safety Report 24906070 (Version 1)
Quarter: 2025Q1

REPORT INFORMATION
  Report Type: Spontaneous
  Country: GB (occurrence: GB)
  Receive Date: 20250130
  Receipt Date: 20250130
  Transmission Date: 20250408
  Serious: Yes (Other)
  Sender: TEVA
  Company Number: GB-MHRA-TPP31257157C1749632YC1737621019439

PATIENT
  Age: 56 Year
  Sex: Female
  Weight: 74 kg

DRUGS (8)
  1. AMLODIPINE [Suspect]
     Active Substance: AMLODIPINE BESYLATE
     Indication: Ill-defined disorder
     Route: 065
     Dates: start: 20250121
  2. CLARITHROMYCIN [Concomitant]
     Active Substance: CLARITHROMYCIN
     Indication: Ill-defined disorder
     Dosage: ACUTE SINUSITIS (ADULTS): ONE TABLET TO BE TAKEN TWICE A DAY FOR 7 DAYS
     Route: 065
     Dates: start: 20241230, end: 20250106
  3. BECLOMETHASONE DIPROPIONATE [Concomitant]
     Active Substance: BECLOMETHASONE DIPROPIONATE
     Indication: Ill-defined disorder
     Dosage: INHALE 2 DOSES TWICE DAILY
     Route: 055
     Dates: start: 20240924
  4. PROGESTERONE [Concomitant]
     Active Substance: PROGESTERONE
     Indication: Ill-defined disorder
     Dosage: TAKE ONE CAPSULE EACH DAY
     Route: 065
     Dates: start: 20250116
  5. LOSARTAN [Concomitant]
     Active Substance: LOSARTAN
     Indication: Ill-defined disorder
     Dosage: ONE TABLET TO BE TAKEN ONCE A DAY  TO REDUCE BL...
     Route: 065
     Dates: start: 20240924
  6. ESTRADIOL [Concomitant]
     Active Substance: ESTRADIOL
     Indication: Ill-defined disorder
     Dosage: THREE PUMPS TO BE APPLIED ONCE A DAY AS DIRECTED
     Route: 065
     Dates: start: 20240924
  7. HYDROMOL [Concomitant]
     Indication: Ill-defined disorder
     Route: 065
     Dates: start: 20240924
  8. UTROGESTAN [Concomitant]
     Active Substance: PROGESTERONE
     Indication: Ill-defined disorder
     Route: 065
     Dates: start: 20240924, end: 20250116

REACTIONS (4)
  - Vaginal haemorrhage [Unknown]
  - Petechiae [Unknown]
  - Oedema [Unknown]
  - Malaise [Unknown]
